FAERS Safety Report 5739211-1 (Version None)
Quarter: 2008Q2

REPORT INFORMATION
  Report Type: 
  Country: None (occurrence: None)
  Receive Date: 20080515
  Receipt Date: 20080509
  Transmission Date: 20081010
  Serious: Yes (Hospitalization)
  Sender: FDA-Public Use
  Company Number: IT-BAYER-200818161GPV

PATIENT
  Age: 71 Year
  Sex: Male

DRUGS (10)
  1. ASPIRIN [Suspect]
     Indication: PROPHYLAXIS
     Dosage: TOTAL DAILY DOSE: 100 MG  UNIT DOSE: 100 MG
     Route: 048
     Dates: start: 20070201, end: 20080415
  2. INDOXEN (INDOMETACIN) [Suspect]
     Indication: GOUT
     Route: 048
     Dates: start: 20080411, end: 20080414
  3. AULIN (NIMESULIDE) [Suspect]
     Indication: GOUT
     Route: 048
     Dates: start: 20080405, end: 20080410
  4. CARDIRENE (LYSINI ACETYLSALICYLAS) [Suspect]
     Indication: PROPHYLAXIS
     Dosage: TOTAL DAILY DOSE: 75 MG  UNIT DOSE: 75 MG
     Route: 048
     Dates: start: 20060101, end: 20080415
  5. CARVEDILOL [Concomitant]
     Indication: MYOCARDIAL ISCHAEMIA
     Dosage: TOTAL DAILY DOSE: 6.25 MG  UNIT DOSE: 6.25 MG
     Route: 048
     Dates: start: 20070201, end: 20080415
  6. LASIX [Concomitant]
     Indication: RENAL FAILURE CHRONIC
     Dosage: TOTAL DAILY DOSE: 100 MG  UNIT DOSE: 100 MG
     Route: 048
     Dates: start: 20070201, end: 20080415
  7. AMARYL [Concomitant]
     Indication: TYPE 2 DIABETES MELLITUS
     Route: 048
     Dates: start: 20060101, end: 20080415
  8. LORTAAN (LOSARTAN) [Concomitant]
     Indication: DRUG USE FOR UNKNOWN INDICATION
     Route: 048
  9. ALLOPURINOL [Concomitant]
     Indication: DRUG USE FOR UNKNOWN INDICATION
     Route: 048
  10. SODIUM BICARBONATE [Concomitant]
     Indication: DRUG USE FOR UNKNOWN INDICATION

REACTIONS (3)
  - ANAEMIA [None]
  - GASTRODUODENITIS HAEMORRHAGIC [None]
  - RECTAL HAEMORRHAGE [None]
